FAERS Safety Report 9565784 (Version 2)
Quarter: 2013Q4

REPORT INFORMATION
  Report Type: Spontaneous
  Country: GB (occurrence: GB)
  Receive Date: 20130930
  Receipt Date: 20131011
  Transmission Date: 20140711
  Serious: Yes (Other)
  Sender: FDA-Public Use
  Company Number: GB-VIIV HEALTHCARE LIMITED-B0924519A

PATIENT
  Sex: Male

DRUGS (1)
  1. KIVEXA [Suspect]
     Indication: PRODUCT USED FOR UNKNOWN INDICATION
     Route: 065
     Dates: start: 2007

REACTIONS (3)
  - Kaposi^s sarcoma [Recovered/Resolved]
  - Skin lesion [Recovered/Resolved]
  - Oral disorder [Recovered/Resolved]
